FAERS Safety Report 24863544 (Version 1)
Quarter: 2025Q1

REPORT INFORMATION
  Report Type: Spontaneous
  Country: DE (occurrence: DE)
  Receive Date: 20250120
  Receipt Date: 20250120
  Transmission Date: 20250409
  Serious: Yes (Other)
  Sender: TEVA
  Company Number: DE-TEVA-VS-3286586

PATIENT
  Age: 63 Year
  Sex: Female
  Weight: 74 kg

DRUGS (13)
  1. CALCITRIOL [Suspect]
     Active Substance: CALCITRIOL
     Indication: Hypoparathyroidism
     Dosage: 100 CAPSULES,PCN 01929531, 1-0-1
     Route: 048
     Dates: start: 202107
  2. LEVOTHYROXINE SODIUM [Concomitant]
     Active Substance: LEVOTHYROXINE SODIUM
     Indication: Product used for unknown indication
     Dosage: 125 HENNING,  1-0-0-0
  3. RAMIPRIL [Concomitant]
     Active Substance: RAMIPRIL
     Indication: Product used for unknown indication
     Dosage: 1A-PHARMA ,1-0-0-0
  4. lndapamid [Concomitant]
     Indication: Product used for unknown indication
     Dosage: AL ,RETARDTABLETTEN,  1-0-0-0
  5. ATORVASTATIN [Concomitant]
     Active Substance: ATORVASTATIN
     Indication: Product used for unknown indication
     Dosage: 1 A PHARMA ,0-0-1-0
  6. ESOMEPRAZOLE [Concomitant]
     Active Substance: ESOMEPRAZOLE
     Indication: Product used for unknown indication
     Dosage: ABZ , 0-0-1-0
  7. HYLO PROTECT [Concomitant]
     Indication: Dry eye
  8. CALCITRIOL [Concomitant]
     Active Substance: CALCITRIOL
     Indication: Hypoparathyroidism
  9. CALCIUM [Concomitant]
     Active Substance: CALCIUM
     Indication: Hypoparathyroidism
     Dosage: VERLA ,1/2-0-1/2-0
  10. FEXOFENADERM [Concomitant]
     Indication: Hypersensitivity
  11. Mometasonfuroat [Concomitant]
     Indication: Product used for unknown indication
  12. Vitamin B Komplex Forte [Concomitant]
     Indication: Muscle spasms
     Dosage: 0-1-0-0, VITAMIN B1/B6/B12
  13. ALBUTEROL [Concomitant]
     Active Substance: ALBUTEROL
     Indication: Product used for unknown indication

REACTIONS (3)
  - Nephrolithiasis [Unknown]
  - Back pain [Not Recovered/Not Resolved]
  - Cholelithiasis [Unknown]

NARRATIVE: CASE EVENT DATE: 20210901
